FAERS Safety Report 18460666 (Version 3)
Quarter: 2023Q2

REPORT INFORMATION
  Report Type: Spontaneous
  Country: US (occurrence: None)
  Receive Date: 20201103
  Receipt Date: 20230510
  Transmission Date: 20230722
  Serious: Yes (Other)
  Sender: FDA-Public Use
  Company Number: US-ROCHE-2707545

PATIENT
  Age: 56 Year
  Sex: Female
  Weight: 82.174 kg

DRUGS (7)
  1. OCREVUS [Suspect]
     Active Substance: OCRELIZUMAB
     Indication: Relapsing-remitting multiple sclerosis
     Dosage: FIRST HALF DOSE OF 300 MG THEN TWO WEEKS LATER OTHER 300 MG?300 MG IN 2 WEEKS AND THEN 600 MG IN 6 M
     Route: 042
     Dates: start: 20200414
  2. OCREVUS [Suspect]
     Active Substance: OCRELIZUMAB
     Route: 042
     Dates: start: 20201030
  3. OCREVUS [Suspect]
     Active Substance: OCRELIZUMAB
     Route: 042
     Dates: start: 2020
  4. MODAFINIL [Concomitant]
     Active Substance: MODAFINIL
     Indication: Fatigue
     Dates: end: 2020
  5. MODAFINIL [Concomitant]
     Active Substance: MODAFINIL
     Dates: start: 2020
  6. GABAPENTIN [Concomitant]
     Active Substance: GABAPENTIN
  7. CRESTOR [Concomitant]
     Active Substance: ROSUVASTATIN CALCIUM

REACTIONS (2)
  - Multiple sclerosis relapse [Not Recovered/Not Resolved]
  - Multiple sclerosis [Not Recovered/Not Resolved]

NARRATIVE: CASE EVENT DATE: 20201001
